FAERS Safety Report 4703540-0 (Version None)
Quarter: 2005Q2

REPORT INFORMATION
  Report Type: 
  Country: None (occurrence: None)
  Receive Date: 20050630
  Receipt Date: 20050620
  Transmission Date: 20051028
  Serious: Yes (Death)
  Sender: FDA-Public Use
  Company Number: US-JNJFOC-20050200336

PATIENT
  Sex: Female
  Weight: 52.16 kg

DRUGS (3)
  1. DURAGESIC-100 [Suspect]
     Route: 062
     Dates: end: 20030130
  2. DURAGESIC-100 [Suspect]
     Route: 062
     Dates: end: 20030130
  3. DURAGESIC-100 [Suspect]
     Indication: DRUG USE FOR UNKNOWN INDICATION
     Route: 062
     Dates: end: 20030130

REACTIONS (7)
  - BRONCHITIS [None]
  - DIPLOPIA [None]
  - DRUG TOXICITY [None]
  - DYSPHAGIA [None]
  - DYSPNOEA [None]
  - VIRAL INFECTION [None]
  - WEIGHT DECREASED [None]
